FAERS Safety Report 13348413 (Version 1)
Quarter: 2017Q1

REPORT INFORMATION
  Report Type: Report from Study
  Country: KR (occurrence: KR)
  Receive Date: 20170320
  Receipt Date: 20170320
  Transmission Date: 20170428
  Serious: Yes (Death, Other)
  Sender: FDA-Public Use
  Company Number: KR-CELGENEUS-KOR-2017032009

PATIENT

DRUGS (2)
  1. ABRAXANE [Suspect]
     Active Substance: PACLITAXEL
     Indication: DUCTAL ADENOCARCINOMA OF PANCREAS
     Route: 041
  2. GEMCITABINE [Suspect]
     Active Substance: GEMCITABINE\GEMCITABINE HYDROCHLORIDE
     Indication: DUCTAL ADENOCARCINOMA OF PANCREAS
     Route: 065

REACTIONS (20)
  - Asthenia [Unknown]
  - Enterocolitis [Unknown]
  - Bile duct stenosis [Unknown]
  - Haematochezia [Unknown]
  - Vomiting [Unknown]
  - Septic shock [Fatal]
  - Ascites [Unknown]
  - Gastritis [Unknown]
  - Pyrexia [Unknown]
  - Hyperglycaemia [Unknown]
  - Anaemia [Unknown]
  - Disease progression [Unknown]
  - Abdominal pain [Unknown]
  - Jaundice [Unknown]
  - Thrombocytopenia [Unknown]
  - Febrile neutropenia [Unknown]
  - Neutropenia [Unknown]
  - Pneumonia [Unknown]
  - Urinary tract infection [Unknown]
  - Gastric varices haemorrhage [Unknown]
